FAERS Safety Report 13361407 (Version 4)
Quarter: 2019Q2

REPORT INFORMATION
  Report Type: Report from Study
  Country: None (occurrence: CA)
  Receive Date: 20170323
  Receipt Date: 20190510
  Transmission Date: 20190711
  Serious: No
  Sender: FDA-Public Use
  Company Number: CA-ABBVIE-15K-028-1395348-00

PATIENT
  Sex: Male

DRUGS (2)
  1. HUMIRA [Suspect]
     Active Substance: ADALIMUMAB
     Route: 058
  2. HUMIRA [Suspect]
     Active Substance: ADALIMUMAB
     Indication: CROHN^S DISEASE
     Route: 058
     Dates: start: 20090415

REACTIONS (5)
  - Pruritus generalised [Not Recovered/Not Resolved]
  - Gastrointestinal polyp [Unknown]
  - Parkinson^s disease [Unknown]
  - Arthritis enteropathic [Recovering/Resolving]
  - Gastrointestinal motility disorder [Unknown]

NARRATIVE: CASE EVENT DATE: 2017
